FAERS Safety Report 6457439-2 (Version None)
Quarter: 2009Q4

REPORT INFORMATION
  Report Type: 
  Country: None (occurrence: None)
  Receive Date: 20091125
  Receipt Date: 20091116
  Transmission Date: 20100525
  Serious: Yes (Other)
  Sender: FDA-Public Use
  Company Number: TR-ABBOTT-09P-161-0608792-00

PATIENT
  Sex: Male
  Weight: 69 kg

DRUGS (1)
  1. HUMIRA [Suspect]
     Indication: PSORIASIS
     Route: 058
     Dates: start: 20090307

REACTIONS (1)
  - FURUNCLE [None]
